FAERS Safety Report 12734040 (Version 1)
Quarter: 2016Q3

REPORT INFORMATION
  Report Type: Spontaneous
  Country: US (occurrence: US)
  Receive Date: 20160912
  Receipt Date: 20160912
  Transmission Date: 20161109
  Serious: Yes (Hospitalization)
  Sender: FDA-Public Use
  Company Number: US-BEH-2016073313

PATIENT
  Age: 48 Year
  Sex: Female
  Weight: 77.98 kg

DRUGS (15)
  1. PRIVIGEN [Suspect]
     Active Substance: HUMAN IMMUNOGLOBULIN G
     Indication: POLYMYOSITIS
  2. PRIVIGEN [Suspect]
     Active Substance: HUMAN IMMUNOGLOBULIN G
     Indication: DERMATOMYOSITIS
     Dosage: 40 G, UNK
     Route: 042
     Dates: start: 20160831
  3. BENADRYL [Concomitant]
     Active Substance: DIPHENHYDRAMINE HYDROCHLORIDE
  4. TYLENOL [Concomitant]
     Active Substance: ACETAMINOPHEN
  5. MYCOPHENOLATE [Concomitant]
     Active Substance: MYCOPHENOLIC ACID
  6. VOLTAREN [Concomitant]
     Active Substance: DICLOFENAC SODIUM
  7. LEVOTHYROXINE. [Concomitant]
     Active Substance: LEVOTHYROXINE
  8. PLAQUENIL                          /00072602/ [Concomitant]
     Active Substance: HYDROXYCHLOROQUINE DIPHOSPHATE
  9. RITUXAN [Concomitant]
     Active Substance: RITUXIMAB
  10. ACETAMINOPHEN. [Concomitant]
     Active Substance: ACETAMINOPHEN
  11. NORMAL SALINE [Concomitant]
     Active Substance: SODIUM CHLORIDE
  12. HYDROXYCHLOROQUINE [Concomitant]
     Active Substance: HYDROXYCHLOROQUINE
  13. CALCIUM [Concomitant]
     Active Substance: CALCIUM
  14. HEPARIN [Concomitant]
     Active Substance: HEPARIN SODIUM
  15. EPIPEN [Concomitant]
     Active Substance: EPINEPHRINE

REACTIONS (6)
  - Pain [Unknown]
  - Pyrexia [Unknown]
  - Back pain [Unknown]
  - Device related infection [Unknown]
  - Nausea [Unknown]
  - Vomiting [Unknown]
